FAERS Safety Report 5473542-8 (Version None)
Quarter: 2007Q4

REPORT INFORMATION
  Report Type: 
  Country: None (occurrence: None)
  Receive Date: 20071001
  Receipt Date: 20070605
  Transmission Date: 20080405
  Serious: Yes (Hospitalization)
  Sender: FDA-Public Use
  Company Number: US-ASTRAZENECA-2007UW12278

PATIENT
  Age: 68 Year
  Sex: Female
  Weight: 76 kg

DRUGS (12)
  1. ARIMIDEX [Suspect]
     Indication: BREAST CANCER
     Route: 048
     Dates: start: 20050325, end: 20070423
  2. PRILOSEC [Suspect]
  3. ATENOLOL [Suspect]
     Indication: HYPERTENSION
  4. TAXOL [Suspect]
     Indication: BREAST CANCER
     Dates: start: 20040701, end: 20041201
  5. ADRIAMYCIN PFS [Suspect]
     Indication: BREAST CANCER
     Dates: start: 20040701, end: 20041201
  6. CYTOXAN [Suspect]
     Indication: BREAST CANCER
     Dates: start: 20040701, end: 20041201
  7. AVANDIA [Concomitant]
  8. GLIPIZIDE [Concomitant]
  9. LYRICA [Concomitant]
  10. TYLENOL (CAPLET) [Concomitant]
  11. ASPIRIN [Concomitant]
  12. LASIX [Concomitant]

REACTIONS (1)
  - MYOCARDIAL ISCHAEMIA [None]
